FAERS Safety Report 16246228 (Version 1)
Quarter: 2019Q2

REPORT INFORMATION
  Report Type: Spontaneous
  Country: US (occurrence: US)
  Receive Date: 20190426
  Receipt Date: 20190426
  Transmission Date: 20190711
  Serious: Yes (Other)
  Sender: FDA-Public Use
  Company Number: US-GILEAD-2019-0404329

PATIENT
  Age: 54 Year
  Sex: Female
  Weight: 176.42 kg

DRUGS (2)
  1. NAPROXEN. [Concomitant]
     Active Substance: NAPROXEN
  2. HARVONI [Suspect]
     Active Substance: LEDIPASVIR\SOFOSBUVIR
     Indication: HEPATITIS C
     Dosage: 1 DOSAGE FORM
     Route: 048
     Dates: start: 20141230, end: 20150324

REACTIONS (1)
  - Treatment failure [Unknown]
